FAERS Safety Report 5594937-8 (Version None)
Quarter: 2008Q1

REPORT INFORMATION
  Report Type: 
  Country: None (occurrence: None)
  Receive Date: 20080117
  Receipt Date: 20080114
  Transmission Date: 20080703
  Serious: Yes (Hospitalization)
  Sender: FDA-Public Use
  Company Number: US-MERCK-0607USA02622

PATIENT
  Age: 49 Year
  Sex: Female
  Weight: 109 kg

DRUGS (3)
  1. FOSAMAX [Suspect]
     Indication: OSTEOPOROSIS
     Route: 048
     Dates: end: 20060201
  2. FOSAMAX [Suspect]
     Indication: OSTEOPENIA
     Route: 048
     Dates: end: 20060201
  3. HORMONES (UNSPECIFIED) [Concomitant]
     Route: 065
     Dates: end: 20050101

REACTIONS (10)
  - ACUTE SINUSITIS [None]
  - ANXIETY [None]
  - DEPRESSION [None]
  - ORAL DISCOMFORT [None]
  - ORAL FUNGAL INFECTION [None]
  - ORAL HERPES [None]
  - OSTEOARTHRITIS [None]
  - OSTEONECROSIS [None]
  - RHEUMATIC FEVER [None]
  - VARICOSE VEIN [None]
